FAERS Safety Report 5835781-3 (Version None)
Quarter: 2008Q3

REPORT INFORMATION
  Report Type: 
  Country: None (occurrence: None)
  Receive Date: 20080806
  Receipt Date: 20080801
  Transmission Date: 20090109
  Serious: Yes (Other)
  Sender: FDA-Public Use
  Company Number: CA-ASTRAZENECA-2008UW14472

PATIENT
  Age: 19 Year
  Sex: Male
  Weight: 81.6 kg

DRUGS (3)
  1. SEROQUEL XR [Suspect]
     Indication: DEPRESSION
     Route: 048
     Dates: start: 20080509, end: 20080625
  2. SEROQUEL XR [Suspect]
     Indication: ANXIETY
     Route: 048
     Dates: start: 20080509, end: 20080625
  3. SEROQUEL XR [Suspect]
     Indication: DELUSIONAL DISORDER, UNSPECIFIED TYPE
     Route: 048
     Dates: start: 20080509, end: 20080625

REACTIONS (2)
  - MULTIPLE DRUG OVERDOSE [None]
  - SUICIDAL IDEATION [None]
